FAERS Safety Report 8306115-X (Version None)
Quarter: 2012Q2

REPORT INFORMATION
  Report Type: 
  Country: None (occurrence: None)
  Receive Date: 20120423
  Receipt Date: 20120418
  Transmission Date: 20120825
  Serious: Yes (Hospitalization, Disabling, Other)
  Sender: FDA-Public Use
  Company Number: US-ROCHE-400500

PATIENT
  Sex: Female
  Weight: 63.5 kg

DRUGS (2)
  1. ACCUTANE [Suspect]
     Indication: ACNE
     Route: 048
     Dates: start: 19980216, end: 19980601
  2. DEMULEN 1/35-21 [Concomitant]
     Indication: CONTRACEPTION
     Route: 048

REACTIONS (14)
  - RECTAL HAEMORRHAGE [None]
  - FATIGUE [None]
  - CROHN'S DISEASE [None]
  - INTERNAL INJURY [None]
  - GASTROINTESTINAL DISORDER [None]
  - ABDOMINAL DISTENSION [None]
  - INTESTINAL HAEMORRHAGE [None]
  - CATARACT [None]
  - ARTHRALGIA [None]
  - DEFAECATION URGENCY [None]
  - OSTEOPENIA [None]
  - INFLAMMATORY BOWEL DISEASE [None]
  - ABDOMINAL PAIN [None]
  - COLITIS [None]
